FAERS Safety Report 18625039 (Version 5)
Quarter: 2022Q2

REPORT INFORMATION
  Report Type: Report from Study
  Country: US (occurrence: US)
  Receive Date: 20201216
  Receipt Date: 20220411
  Transmission Date: 20220721
  Serious: No
  Sender: FDA-Public Use
  Company Number: NVSC2020US329521

PATIENT
  Age: 36 Year
  Sex: Male

DRUGS (1)
  1. COSENTYX [Suspect]
     Active Substance: SECUKINUMAB
     Indication: Psoriasis
     Dosage: 300 MG, QMO; PT HAS BEEN ON COSENTYX 3 YEARS
     Route: 058
     Dates: start: 20180515, end: 20201209

REACTIONS (3)
  - Injection site swelling [Recovered/Resolved]
  - Injection site bruising [Unknown]
  - Tooth abscess [Unknown]

NARRATIVE: CASE EVENT DATE: 20201120
